FAERS Safety Report 14030848 (Version 1)
Quarter: 2017Q4

REPORT INFORMATION
  Report Type: Report from Study
  Country: CA (occurrence: CA)
  Receive Date: 20171002
  Receipt Date: 20171002
  Transmission Date: 20180321
  Serious: Yes (Hospitalization)
  Sender: FDA-Public Use
  Company Number: US-ASTRAZENECA-2017SE76248

PATIENT
  Age: 23727 Day
  Sex: Male
  Weight: 74.8 kg

DRUGS (33)
  1. AZACITIDINE. [Suspect]
     Active Substance: AZACITIDINE
     Indication: ACUTE MYELOID LEUKAEMIA
     Route: 058
     Dates: start: 20170620, end: 20170626
  2. TRANEXAMIC ACID. [Concomitant]
     Active Substance: TRANEXAMIC ACID
     Indication: HAEMORRHAGE
     Dosage: 500 MILLIGRAM
     Route: 065
     Dates: start: 20170602
  3. DULCOLAX NOS [Concomitant]
     Active Substance: BISACODYL OR DOCUSATE SODIUM
     Indication: CONSTIPATION
     Dosage: 25 MILLIGRAM
     Route: 065
     Dates: start: 20170627
  4. PIPERACILLIN/TAZOBACTAM [Concomitant]
     Active Substance: PIPERACILLIN SODIUM\TAZOBACTAM SODIUM
     Indication: INTESTINAL OBSTRUCTION
     Dosage: 4 GRAM
     Route: 065
     Dates: start: 20170704, end: 20170708
  5. PREDNISONE. [Concomitant]
     Active Substance: PREDNISONE
     Indication: INFECTION
     Dosage: 75 MILLIGRAM
     Route: 065
     Dates: start: 20170709, end: 20170714
  6. PREDNISONE. [Concomitant]
     Active Substance: PREDNISONE
     Indication: ENTERITIS
     Dosage: 25 MILLIGRAM
     Route: 065
     Dates: start: 20170719, end: 20170723
  7. PREDNISONE. [Concomitant]
     Active Substance: PREDNISONE
     Indication: ENTERITIS
     Dosage: 10 MILLIGRAM
     Route: 065
     Dates: start: 20170729, end: 20170801
  8. METHYLPREDNISOLONE. [Concomitant]
     Active Substance: METHYLPREDNISOLONE
     Indication: ARTHRITIS
     Dosage: 2 MILLIGRAM/KILOGRAM
     Route: 065
     Dates: start: 20170704, end: 20170708
  9. PANTOLOC [Concomitant]
     Active Substance: PANTOPRAZOLE SODIUM
     Indication: GASTROOESOPHAGEAL REFLUX DISEASE
     Dosage: 40 MILLIGRAM
     Route: 065
     Dates: start: 20170703
  10. MEDI4736 (DURVALUMAB) [Suspect]
     Active Substance: DURVALUMAB
     Indication: ACUTE MYELOID LEUKAEMIA
     Route: 041
     Dates: start: 20170620, end: 20170620
  11. PREDNISONE. [Concomitant]
     Active Substance: PREDNISONE
     Indication: INFECTION
     Dosage: 40 MILLIGRAM
     Route: 065
     Dates: start: 20170714, end: 20170718
  12. PREDNISONE. [Concomitant]
     Active Substance: PREDNISONE
     Indication: INFECTION
     Dosage: 15 MILLIGRAM
     Route: 065
     Dates: start: 20170724, end: 20170728
  13. PREDNISONE. [Concomitant]
     Active Substance: PREDNISONE
     Indication: INFECTION
     Dosage: 5 MILLIGRAM
     Route: 065
     Dates: start: 20170802, end: 20170805
  14. XYLOCAINE VISCOUS [Concomitant]
     Active Substance: LIDOCAINE HYDROCHLORIDE
     Indication: ORAL PAIN
     Dosage: 30 MILLILITER
     Route: 065
     Dates: start: 20170703, end: 20170707
  15. MAGNESIUM HYDROXIDE. [Concomitant]
     Active Substance: MAGNESIUM HYDROXIDE
     Indication: ORAL PAIN
     Dosage: 30 MILLILITER
     Route: 065
     Dates: start: 20170703, end: 20170707
  16. PREDNISONE. [Concomitant]
     Active Substance: PREDNISONE
     Indication: ENTERITIS
     Dosage: 75 MILLIGRAM
     Route: 065
     Dates: start: 20170709, end: 20170714
  17. PREDNISONE. [Concomitant]
     Active Substance: PREDNISONE
     Indication: INTESTINAL OBSTRUCTION
     Dosage: 75 MILLIGRAM
     Route: 065
     Dates: start: 20170709, end: 20170714
  18. PREDNISONE. [Concomitant]
     Active Substance: PREDNISONE
     Indication: INFECTION
     Dosage: 25 MILLIGRAM
     Route: 065
     Dates: start: 20170719, end: 20170723
  19. PREDNISONE. [Concomitant]
     Active Substance: PREDNISONE
     Indication: ENTERITIS
     Dosage: 15 MILLIGRAM
     Route: 065
     Dates: start: 20170724, end: 20170728
  20. PREDNISONE. [Concomitant]
     Active Substance: PREDNISONE
     Indication: INTESTINAL OBSTRUCTION
     Dosage: 10 MILLIGRAM
     Route: 065
     Dates: start: 20170729, end: 20170801
  21. PREDNISONE. [Concomitant]
     Active Substance: PREDNISONE
     Indication: ENTERITIS
     Dosage: 5 MILLIGRAM
     Route: 065
     Dates: start: 20170802, end: 20170805
  22. PIPERACILLIN/TAZOBACTAM [Concomitant]
     Active Substance: PIPERACILLIN SODIUM\TAZOBACTAM SODIUM
     Indication: INTESTINAL OBSTRUCTION
     Dosage: 3.375 GRAM
     Route: 065
     Dates: start: 20170703, end: 20170703
  23. VALACICLOVIR [Concomitant]
     Active Substance: VALACYCLOVIR HYDROCHLORIDE
     Indication: INFECTION
     Dosage: 500 MILLIGRAM
     Route: 065
     Dates: start: 20170602
  24. PREDNISONE. [Concomitant]
     Active Substance: PREDNISONE
     Indication: ENTERITIS
     Dosage: 40 MILLIGRAM
     Route: 065
     Dates: start: 20170714, end: 20170718
  25. PREDNISONE. [Concomitant]
     Active Substance: PREDNISONE
     Indication: INTESTINAL OBSTRUCTION
     Dosage: 40 MILLIGRAM
     Route: 065
     Dates: start: 20170714, end: 20170718
  26. PREDNISONE. [Concomitant]
     Active Substance: PREDNISONE
     Indication: INTESTINAL OBSTRUCTION
     Dosage: 25 MILLIGRAM
     Route: 065
     Dates: start: 20170719, end: 20170723
  27. PREDNISONE. [Concomitant]
     Active Substance: PREDNISONE
     Indication: INTESTINAL OBSTRUCTION
     Dosage: 5 MILLIGRAM
     Route: 065
     Dates: start: 20170802, end: 20170805
  28. MORPHINE [Concomitant]
     Active Substance: MORPHINE
     Indication: ABDOMINAL PAIN
     Dosage: 2.5-5MG
     Route: 065
     Dates: start: 20170703
  29. PREDNISONE. [Concomitant]
     Active Substance: PREDNISONE
     Indication: INTESTINAL OBSTRUCTION
     Dosage: 15 MILLIGRAM
     Route: 065
     Dates: start: 20170724, end: 20170728
  30. PIPERACILLIN/TAZOBACTAM [Concomitant]
     Active Substance: PIPERACILLIN SODIUM\TAZOBACTAM SODIUM
     Indication: ENTERITIS
     Dosage: 3.375 GRAM
     Route: 065
     Dates: start: 20170703, end: 20170703
  31. TELMISARTAN. [Concomitant]
     Active Substance: TELMISARTAN
     Indication: ROUTINE HEALTH MAINTENANCE
     Dosage: 80/12.5MG
     Route: 065
  32. PREDNISONE. [Concomitant]
     Active Substance: PREDNISONE
     Indication: INFECTION
     Dosage: 10 MILLIGRAM
     Route: 065
     Dates: start: 20170729, end: 20170801
  33. PIPERACILLIN/TAZOBACTAM [Concomitant]
     Active Substance: PIPERACILLIN SODIUM\TAZOBACTAM SODIUM
     Indication: ENTERITIS
     Dosage: 4 GRAM
     Route: 065
     Dates: start: 20170704, end: 20170708

REACTIONS (1)
  - Febrile neutropenia [Recovered/Resolved]

NARRATIVE: CASE EVENT DATE: 20170716
